FAERS Safety Report 4686468-4 (Version None)
Quarter: 2005Q2

REPORT INFORMATION
  Report Type: 
  Country: None (occurrence: None)
  Receive Date: 20050606
  Receipt Date: 20040112
  Transmission Date: 20051028
  Serious: Yes (Other)
  Sender: FDA-Public Use
  Company Number: 2004195161GB

PATIENT
  Age: 29 Year
  Sex: Female

DRUGS (8)
  1. METHYLPREDNISOLONE [Suspect]
     Indication: TRANSPLANT REJECTION
  2. DELTA-CORTEF [Suspect]
     Dosage: 10 MG
  3. ATGAM [Suspect]
     Indication: TRANSPLANT REJECTION
  4. MYCOPHENOLIC ACID [Concomitant]
  5. NEORAL [Concomitant]
  6. NEORAL [Concomitant]
  7. LABETALOL HCL [Concomitant]
  8. AMLODIPINE [Concomitant]

REACTIONS (6)
  - ABORTION SPONTANEOUS [None]
  - DRUG EXPOSURE DURING PREGNANCY [None]
  - INTRA-UTERINE DEATH [None]
  - KIDNEY TRANSPLANT REJECTION [None]
  - PREGNANCY [None]
  - URINARY TRACT INFECTION [None]
